FAERS Safety Report 13229840 (Version 1)
Quarter: 2017Q1

REPORT INFORMATION
  Report Type: Spontaneous
  Country: NL (occurrence: NL)
  Receive Date: 20170214
  Receipt Date: 20170214
  Transmission Date: 20170428
  Serious: Yes (Other)
  Sender: FDA-Public Use
  Company Number: NL-TEVA-738578ACC

PATIENT
  Age: 44 Year
  Sex: Female
  Weight: 80 kg

DRUGS (12)
  1. MIDAZOLAM NEUSSPRAY 2,5MG/DO [Concomitant]
     Dosage: WITH INSULT 2 PUFFS IN BOTH NOSTRILS REPEAT COMMISSIONED BY DOCTOR 1 PUFF
     Route: 048
  2. MOVICOLON POEDER VOOR DRANK IN SACHET [Concomitant]
     Dosage: .5 DOSAGE FORMS DAILY;
     Route: 048
  3. PARACETAMOL TABLET  500MG [Concomitant]
     Active Substance: ACETAMINOPHEN
     Dosage: WITH HEADACHE OR OTHER PAIN COMPLAINTS, MAXIMUM 3 TIMES DAILY 2 PIECES
     Route: 048
  4. KURKUMA [Concomitant]
     Dosage: 2 DOSAGE FORMS DAILY;
     Route: 048
  5. TEGRETOL CR TABLET MGA 400MG [Concomitant]
     Dosage: 1200 MILLIGRAM DAILY;
     Route: 048
  6. CANNABIDIOL DRUPPELS 100MG/ML [Concomitant]
     Route: 048
  7. COLECALCIFEROL TABLET  5600IE [Concomitant]
     Dosage: 1 PER WEEK ON WEDNESDAY
     Route: 048
  8. MIDAZOLAM INJVLST 5MG/ML [Concomitant]
     Dosage: WITH INSULT AN AMPULE IN BUCCAL POUCH
     Route: 048
  9. BISACODYL ZETPIL 10MG [Concomitant]
     Dosage: 22:00H 1 PIECE TUESDAY-THURSDAY- SUNDAY
     Route: 054
  10. TAMOXIFEN [Suspect]
     Active Substance: TAMOXIFEN
     Indication: BREAST CANCER
     Dosage: 20 MILLIGRAM DAILY;
     Route: 048
     Dates: start: 20160323, end: 20161107
  11. KEPPRA TABLET FILMOMHULD  500MG [Concomitant]
     Dosage: 2000 MILLIGRAM DAILY;
     Route: 048
  12. SABRIL TABLET 500MG [Concomitant]
     Dosage: 2000 MILLIGRAM DAILY;
     Route: 048

REACTIONS (1)
  - Epilepsy [Recovered/Resolved]

NARRATIVE: CASE EVENT DATE: 20160818
